FAERS Safety Report 16025472 (Version 1)
Quarter: 2019Q1

REPORT INFORMATION
  Report Type: Spontaneous
  Country: IT (occurrence: IT)
  Receive Date: 20190301
  Receipt Date: 20190301
  Transmission Date: 20190418
  Serious: Yes (Other)
  Sender: FDA-Public Use
  Company Number: IT-AUROBINDO-AUR-APL-2019-010763

PATIENT

DRUGS (2)
  1. PACLITAXEL. [Suspect]
     Active Substance: PACLITAXEL
     Indication: OVARIAN CANCER
     Dosage: 290 MILLIGRAM, CYCLICAL
     Route: 042
     Dates: start: 20180801, end: 20181101
  2. CARBOPLATIN. [Suspect]
     Active Substance: CARBOPLATIN
     Indication: OVARIAN CANCER
     Dosage: 600 MILLIGRAM, CYCLICAL
     Route: 042
     Dates: start: 20180801, end: 20181101

REACTIONS (1)
  - Hair disorder [Recovered/Resolved]
